FAERS Safety Report 7575546-8 (Version None)
Quarter: 2011Q2

REPORT INFORMATION
  Report Type: 
  Country: None (occurrence: None)
  Receive Date: 20110627
  Receipt Date: 20110623
  Transmission Date: 20111010
  Serious: Yes (Other)
  Sender: FDA-Public Use
  Company Number: GB-MERCK-1106GBR00105

PATIENT
  Age: 24 Month
  Sex: Female

DRUGS (2)
  1. ALBUTEROL [Concomitant]
     Route: 065
  2. SINGULAIR [Suspect]
     Route: 048
     Dates: start: 20091029, end: 20110601

REACTIONS (4)
  - SLEEP DISORDER [None]
  - NIGHTMARE [None]
  - DEPRESSION [None]
  - SOCIAL AVOIDANT BEHAVIOUR [None]
